FAERS Safety Report 5729493-4 (Version None)
Quarter: 2008Q2

REPORT INFORMATION
  Report Type: 
  Country: None (occurrence: None)
  Receive Date: 20080506
  Receipt Date: 20080428
  Transmission Date: 20081010
  Serious: Yes (Other)
  Sender: FDA-Public Use
  Company Number: DE-ELI_LILLY_AND_COMPANY-DE200801006903

PATIENT
  Sex: Male

DRUGS (3)
  1. BYETTA [Suspect]
     Indication: TYPE 2 DIABETES MELLITUS
     Dosage: 20 UG, DAILY (1/D)
     Route: 058
     Dates: start: 20071201, end: 20080124
  2. METFORMIN HCL [Concomitant]
     Dosage: 2000 MG, DAILY (1/D)
     Route: 048
  3. GLIMEPIRIDE [Concomitant]
     Dosage: 3 MG, DAILY (1/D)
     Route: 065

REACTIONS (1)
  - PANCREATITIS [None]
